FAERS Safety Report 5451689-X (Version None)
Quarter: 2007Q3

REPORT INFORMATION
  Report Type: 
  Country: None (occurrence: None)
  Receive Date: 20070803
  Receipt Date: 20070504
  Transmission Date: 20080115
  Serious: Yes (Other)
  Sender: FDA-Public Use
  Company Number: 36826

PATIENT
  Age: 82 Year
  Sex: Male
  Weight: 70.3075 kg

DRUGS (10)
  1. PROPOFOL [Suspect]
     Indication: ANAESTHESIA
     Dosage: 185MG/OVER 20 MIN/IV
     Route: 042
     Dates: start: 20070426
  2. LISINOPRIL [Concomitant]
  3. METOPROLVE [Concomitant]
  4. OMENRAZOLE [Concomitant]
  5. FELODIPINE [Concomitant]
  6. HYDODIURIL [Concomitant]
  7. CLARITEN [Concomitant]
  8. ACTONEL [Concomitant]
  9. ATROVENT [Concomitant]
  10. ASPIRIN [Concomitant]

REACTIONS (3)
  - CHILLS [None]
  - PAIN [None]
  - TREMOR [None]
